FAERS Safety Report 8849139 (Version 1)
Quarter: 2012Q4

REPORT INFORMATION
  Report Type: 
  Country: CO (occurrence: CO)
  Receive Date: 20121019
  Receipt Date: 20121019
  Transmission Date: 20130627
  Serious: Yes (Other)
  Sender: FDA-Public Use
  Company Number: CO-AMGEN-COLSP2012066372

PATIENT
  Age: 56 Year
  Sex: Male

DRUGS (7)
  1. ENBREL [Suspect]
     Indication: RHEUMATOID ARTHRITIS
     Dosage: 50 mg, weekly
     Route: 058
     Dates: start: 201112, end: 201202
  2. OMEPRAZOL                          /00661201/ [Concomitant]
     Dosage: 20 mg, UNK
  3. ENALAPRIL [Concomitant]
     Dosage: 15 mg, 2x/day
  4. CALCITROL                          /00508501/ [Concomitant]
     Dosage: 0.25 ug, UNK
  5. FOLIC ACID [Concomitant]
     Dosage: 1 mg, UNK
  6. ASCORBIC ACID [Concomitant]
     Dosage: 500 mg, UNK
  7. HYDROCHLOROTHIAZIDE [Concomitant]
     Dosage: 25 mg, UNK

REACTIONS (10)
  - Hypertension [Recovered/Resolved]
  - Hepatic enzyme increased [Recovering/Resolving]
  - Anxiety [Unknown]
  - Skin lesion [Unknown]
  - Papule [Unknown]
  - Dry skin [Unknown]
  - Drug ineffective [Unknown]
  - Candidiasis [Unknown]
  - Psoriasis [Recovering/Resolving]
  - Injection site urticaria [Unknown]
